FAERS Safety Report 5311578-8 (Version None)
Quarter: 2007Q2

REPORT INFORMATION
  Report Type: 
  Country: None (occurrence: None)
  Receive Date: 20070426
  Receipt Date: 20070426
  Transmission Date: 20071010
  Serious: Yes (Other)
  Sender: FDA-Public Use
  Company Number: None

PATIENT
  Age: 43 Year
  Sex: Male
  Weight: 93 kg

DRUGS (7)
  1. RANITIDINE HCL [Suspect]
     Indication: GASTROOESOPHAGEAL REFLUX DISEASE
     Dosage: 300 MG, PO HS
     Route: 048
     Dates: start: 20061024, end: 20061102
  2. DIOVAN [Concomitant]
  3. CLONIDINE HCL [Concomitant]
  4. DOCUSATE [Concomitant]
  5. HYPROMELLOSE [Concomitant]
  6. NITROGLYCERIN [Concomitant]
  7. PERCOCET [Concomitant]

REACTIONS (3)
  - DRUG HYPERSENSITIVITY [None]
  - OEDEMA PERIPHERAL [None]
  - RASH [None]
